FAERS Safety Report 8846783 (Version 2)
Quarter: 2012Q4

REPORT INFORMATION
  Report Type: Spontaneous
  Country: US (occurrence: None)
  Receive Date: 20121016
  Receipt Date: 20121024
  Transmission Date: 20130627
  Serious: Yes (Hospitalization)
  Sender: FDA-Public Use
  Company Number: JPI-P-025598

PATIENT
  Age: 67 Year
  Sex: Male

DRUGS (4)
  1. XYREM (500 MILLIGRAM/ MILLILITERS, SOLUTION) (SODIUM OXYBATE) [Suspect]
     Indication: RESTLESS LEG SYNDROME
     Route: 048
     Dates: start: 20090325, end: 2009
  2. XYREM (500 MILLIGRAM/ MILLILITERS, SOLUTION) (SODIUM OXYBATE) [Suspect]
     Indication: RESTLESS LEG SYNDROME
     Route: 048
     Dates: start: 2009, end: 2009
  3. XYREM (500 MILLIGRAM/ MILLILITERS, SOLUTION) (SODIUM OXYBATE) [Suspect]
     Indication: RESTLESS LEG SYNDROME
     Dosage: 4.5 gm, 2 in 1 D
     Route: 048
     Dates: start: 20090506, end: 2012
  4. XYREM (500 MILLIGRAM/ MILLILITERS, SOLUTION) (SODIUM OXYBATE) [Suspect]
     Indication: RESTLESS LEG SYNDROME
     Dosage: 3.75 gm, 2 in 1 D
     Route: 048
     Dates: start: 2012

REACTIONS (11)
  - Hernia repair [None]
  - Prostatic operation [None]
  - Insomnia [None]
  - Lumbar vertebral fracture [None]
  - Neuralgia [None]
  - Spinal compression fracture [None]
  - Intervertebral disc protrusion [None]
  - Hernia gangrenous [None]
  - Fall [None]
  - Sciatica [None]
  - Fluid retention [None]
